FAERS Safety Report 9305529 (Version 1)
Quarter: 2013Q2

REPORT INFORMATION
  Report Type: Spontaneous
  Country: US (occurrence: None)
  Receive Date: 20130520
  Receipt Date: 20130520
  Transmission Date: 20140414
  Serious: Yes (Other)
  Sender: FDA-Public Use
  Company Number: AUR-APL-2013-03981

PATIENT
  Age: 40 Year
  Sex: Female

DRUGS (8)
  1. TOPIRAMATE [Suspect]
     Indication: PRODUCT USED FOR UNKNOWN INDICATION
     Dosage: 100 MG (50 MG, 2 IN 1 D)
  2. ATENOLOL (ATENOLOL) [Concomitant]
  3. GABAPENTIN(GABAPENTIN) [Concomitant]
  4. LISINOPRIL(LISINOPRIL) [Concomitant]
  5. GEMFIBROZIL(GEMFIBROZIL) [Concomitant]
  6. HYDROCODONE(HYDROCODONE) [Concomitant]
  7. ALBUTEROL(SALBUTAMOL) [Concomitant]
  8. BECLOMETHASONE(BECLOMETASONE DIPROPIONATE) [Concomitant]

REACTIONS (5)
  - Angle closure glaucoma [None]
  - Myopia [None]
  - Corneal oedema [None]
  - Visual acuity reduced [None]
  - Conjunctival oedema [None]
